FAERS Safety Report 6735544-0 (Version None)
Quarter: 2010Q2

REPORT INFORMATION
  Report Type: 
  Country: None (occurrence: None)
  Receive Date: 20100521
  Receipt Date: 20100513
  Transmission Date: 20101027
  Serious: Yes (Other)
  Sender: FDA-Public Use
  Company Number: GB-TEVA-234629ISR

PATIENT
  Age: 46 Year
  Sex: Female

DRUGS (2)
  1. DORZOLAMIDE [Suspect]
     Route: 046
  2. DORZOLAMIDE HYDROCHLORIDE AND TIMOLOL MALEATE [Suspect]
     Route: 047

REACTIONS (6)
  - AORTIC DILATATION [None]
  - DRUG INEFFECTIVE [None]
  - GLAUCOMA SURGERY [None]
  - LENS DISLOCATION [None]
  - PALPITATIONS [None]
  - VITREOUS DISORDER [None]
